FAERS Safety Report 13897526 (Version 1)
Quarter: 2017Q3

REPORT INFORMATION
  Report Type: Spontaneous
  Country: US (occurrence: US)
  Receive Date: 20170823
  Receipt Date: 20170823
  Transmission Date: 20171127
  Serious: Yes (Other)
  Sender: FDA-Public Use
  Company Number: US-SA-2017SA134083

PATIENT
  Age: 73 Year
  Sex: Male

DRUGS (2)
  1. MULTAQ [Suspect]
     Active Substance: DRONEDARONE
     Indication: ATRIAL FIBRILLATION
     Route: 048
     Dates: start: 20170708
  2. MULTAQ [Suspect]
     Active Substance: DRONEDARONE
     Indication: ATRIAL FIBRILLATION
     Route: 048
     Dates: start: 20170131

REACTIONS (5)
  - Heart rate abnormal [Recovering/Resolving]
  - Intentional product use issue [Unknown]
  - Atrial fibrillation [Recovered/Resolved]
  - Fatigue [Recovered/Resolved]
  - Blood pressure increased [Not Recovered/Not Resolved]
